FAERS Safety Report 15517303 (Version 1)
Quarter: 2018Q4

REPORT INFORMATION
  Report Type: Report from Study
  Country: US (occurrence: US)
  Receive Date: 20181017
  Receipt Date: 20181017
  Transmission Date: 20190205
  Serious: Yes (Other)
  Sender: FDA-Public Use
  Company Number: US-UCBSA-2018045655

PATIENT
  Sex: Male

DRUGS (5)
  1. LEVETIRACETAM. [Suspect]
     Active Substance: LEVETIRACETAM
     Dosage: MORNING 4 ML AND NIGHT 5 ML
  2. LEVETIRACETAM. [Suspect]
     Active Substance: LEVETIRACETAM
     Indication: EPILEPSY
     Dosage: 1 ML, 2X/DAY (BID)
  3. LEVETIRACETAM. [Suspect]
     Active Substance: LEVETIRACETAM
     Dosage: 4 ML, 2X/DAY (BID)
  4. LEVETIRACETAM. [Suspect]
     Active Substance: LEVETIRACETAM
     Dosage: DOSE INCREASE
  5. B6 [Concomitant]
     Active Substance: PYRIDOXINE HYDROCHLORIDE
     Indication: PRODUCT USED FOR UNKNOWN INDICATION
     Dosage: 25 MG, UNK

REACTIONS (6)
  - Off label use [Unknown]
  - Aggression [Unknown]
  - Depressed level of consciousness [Unknown]
  - Impulsive behaviour [Unknown]
  - Abnormal behaviour [Unknown]
  - Attention deficit/hyperactivity disorder [Unknown]
